FAERS Safety Report 9908051 (Version 1)
Quarter: 2014Q1

REPORT INFORMATION
  Report Type: Report from Study
  Country: US (occurrence: US)
  Receive Date: 20140219
  Receipt Date: 20140219
  Transmission Date: 20141002
  Serious: Yes (Other)
  Sender: FDA-Public Use
  Company Number: US-ROCHE-1352238

PATIENT
  Sex: Female

DRUGS (6)
  1. LUCENTIS [Suspect]
     Indication: MACULAR DEGENERATION
     Route: 065
  2. LANOXIN [Concomitant]
  3. LASIX [Concomitant]
  4. ALTACE [Concomitant]
  5. ALBUTEROL [Concomitant]
  6. SYNTHROID [Concomitant]

REACTIONS (3)
  - Deafness [Unknown]
  - Visual acuity reduced [Unknown]
  - Cardiac disorder [Unknown]
